FAERS Safety Report 8421247-3 (Version None)
Quarter: 2012Q2

REPORT INFORMATION
  Report Type: 
  Country: None (occurrence: None)
  Receive Date: 20120608
  Receipt Date: 20120529
  Transmission Date: 20120825
  Serious: No
  Sender: FDA-Public Use
  Company Number: IL-SANOFI-AVENTIS-2012SA039934

PATIENT
  Age: 71 Year
  Sex: Female

DRUGS (3)
  1. CALCIUM CHANNEL BLOCKERS [Concomitant]
  2. COUMADIN [Concomitant]
  3. MULTAQ [Suspect]
     Indication: ATRIAL FIBRILLATION
     Route: 065

REACTIONS (2)
  - OEDEMA PERIPHERAL [None]
  - BLOOD CREATININE INCREASED [None]
